FAERS Safety Report 16005680 (Version 2)
Quarter: 2019Q1

REPORT INFORMATION
  Report Type: Spontaneous
  Country: US (occurrence: US)
  Receive Date: 20190226
  Receipt Date: 20190305
  Transmission Date: 20190418
  Serious: No
  Sender: FDA-Public Use
  Company Number: US-009507513-1902USA008694

PATIENT

DRUGS (2)
  1. NEXPLANON [Suspect]
     Active Substance: ETONOGESTREL
     Dosage: 1 DOSAGE FORM
     Route: 059
  2. NEXPLANON [Suspect]
     Active Substance: ETONOGESTREL
     Dosage: 1 DOSAGE FORM
     Route: 059

REACTIONS (5)
  - Product quality issue [Recovered/Resolved]
  - Complication of device insertion [Recovered/Resolved]
  - No adverse event [Unknown]
  - Device expulsion [Recovered/Resolved]
  - Device difficult to use [Recovered/Resolved]
